FAERS Safety Report 6690052-0 (Version None)
Quarter: 2010Q2

REPORT INFORMATION
  Report Type: 
  Country: None (occurrence: None)
  Receive Date: 20100421
  Receipt Date: 20100413
  Transmission Date: 20101027
  Serious: Yes (Hospitalization, Other)
  Sender: FDA-Public Use
  Company Number: PHHO2010IN02600

PATIENT
  Sex: Male

DRUGS (8)
  1. NEORAL [Suspect]
     Indication: RENAL TRANSPLANT
     Dosage: 125 MG, QD
     Route: 048
     Dates: start: 20091219, end: 20100109
  2. NEORAL [Suspect]
     Dosage: 50 MG DAILY
     Route: 048
     Dates: start: 20100113, end: 20100211
  3. NEORAL [Suspect]
     Dosage: UNK
  4. CELLCEPT [Concomitant]
     Indication: RENAL TRANSPLANT
     Dosage: 500 MG
     Route: 048
     Dates: start: 20100106
  5. EVEROLIMUS [Concomitant]
     Dosage: 0.5 MG, BID
  6. PREDNISOLONE [Concomitant]
     Dosage: UNK
     Route: 048
     Dates: start: 20100106, end: 20100109
  7. METOPROLOL TARTRATE [Concomitant]
  8. RAMIPRIL [Concomitant]

REACTIONS (10)
  - ANAEMIA [None]
  - BLOOD CREATININE INCREASED [None]
  - DIARRHOEA [None]
  - GLOMERULONEPHROPATHY [None]
  - GRAFT DYSFUNCTION [None]
  - GRAFT LOSS [None]
  - HYPERTENSION [None]
  - OEDEMA PERIPHERAL [None]
  - PROTEINURIA [None]
  - SWELLING FACE [None]
